FAERS Safety Report 19559177 (Version 2)
Quarter: 2021Q3

REPORT INFORMATION
  Report Type: Spontaneous
  Country: US (occurrence: US)
  Receive Date: 20210714
  Receipt Date: 20210811
  Transmission Date: 20211014
  Serious: Yes (Hospitalization, Other)
  Sender: FDA-Public Use
  Company Number: US-SK LIFE SCIENCE, INC-SKPVG-2020-000460

PATIENT

DRUGS (6)
  1. XCOPRI [Suspect]
     Active Substance: CENOBAMATE
     Indication: SEIZURE
     Dosage: 300 MILLIGRAM, QD TABLET
     Route: 048
     Dates: start: 2020
  2. ZONISAMIDE. [Suspect]
     Active Substance: ZONISAMIDE
     Indication: PRODUCT USED FOR UNKNOWN INDICATION
     Dosage: 100 MILLIGRAM, 3 CAPSULES QD
     Route: 065
  3. XCOPRI [Suspect]
     Active Substance: CENOBAMATE
     Dosage: UNK, 5 PILLS
     Route: 065
     Dates: start: 2020, end: 20201207
  4. XCOPRI [Suspect]
     Active Substance: CENOBAMATE
     Dosage: 150 MILLIGRAM, 2 DAILY AT BED TIME
     Route: 048
     Dates: start: 20201212
  5. LORAZEPAM. [Suspect]
     Active Substance: LORAZEPAM
     Indication: SEIZURE PROPHYLAXIS
     Dosage: 1 BEFORE BED TIME
     Route: 065
  6. XCOPRI [Suspect]
     Active Substance: CENOBAMATE
     Dosage: UNK (2 BY MOUTH)
     Route: 048
     Dates: start: 20201215

REACTIONS (8)
  - Hallucination, auditory [Recovered/Resolved]
  - Product dose omission issue [Recovered/Resolved]
  - Gastritis [Recovered/Resolved]
  - Insomnia [Recovered/Resolved]
  - Lip injury [Recovered/Resolved]
  - Seizure [Recovered/Resolved]
  - Alopecia [Recovered/Resolved]
  - Mouth injury [Recovered/Resolved]

NARRATIVE: CASE EVENT DATE: 2020
